FAERS Safety Report 11859400 (Version 2)
Quarter: 2016Q1

REPORT INFORMATION
  Report Type: Spontaneous
  Country: US (occurrence: US)
  Receive Date: 20151221
  Receipt Date: 20160204
  Transmission Date: 20160526
  Serious: No
  Sender: FDA-Public Use
  Company Number: US-ELI_LILLY_AND_COMPANY-US201512001384

PATIENT
  Age: 51 Year
  Sex: Male
  Weight: 90.7 kg

DRUGS (2)
  1. TRULICITY [Suspect]
     Active Substance: DULAGLUTIDE
     Indication: WEIGHT CONTROL
     Dosage: 0.75 MG, WEEKLY (1/W)
     Route: 058
     Dates: start: 20150702, end: 20151210
  2. TRULICITY [Suspect]
     Active Substance: DULAGLUTIDE
     Indication: METABOLIC SYNDROME

REACTIONS (3)
  - Weight decreased [Recovered/Resolved]
  - Hyperglycaemia [Unknown]
  - Off label use [Unknown]

NARRATIVE: CASE EVENT DATE: 20150702
